FAERS Safety Report 13088175 (Version 1)
Quarter: 2017Q1

REPORT INFORMATION
  Report Type: Spontaneous
  Country: US (occurrence: US)
  Receive Date: 20170103
  Receipt Date: 20170103
  Transmission Date: 20170428
  Serious: Yes (Other)
  Sender: FDA-Public Use
  Company Number: None

PATIENT
  Age: 62 Year
  Sex: Female
  Weight: 96.7 kg

DRUGS (5)
  1. WOMEN^S VITAMIN [Concomitant]
  2. GLUCOSAMINE [Concomitant]
     Active Substance: GLUCOSAMINE
  3. FISH OIL [Concomitant]
     Active Substance: FISH OIL
  4. WOMENS ROGAINE [Suspect]
     Active Substance: MINOXIDIL
     Indication: HAIR DISORDER
     Dosage: QUANTITY:0.5 CAPFUL;?
     Route: 061
     Dates: start: 20161004, end: 20161009
  5. MELATONIN [Concomitant]
     Active Substance: MELATONIN

REACTIONS (5)
  - Erythema [None]
  - Swelling face [None]
  - Feeling hot [None]
  - Pain [None]
  - Blister [None]

NARRATIVE: CASE EVENT DATE: 20161009
